FAERS Safety Report 13567239 (Version 2)
Quarter: 2018Q2

REPORT INFORMATION
  Report Type: Spontaneous
  Country: US (occurrence: US)
  Receive Date: 20170522
  Receipt Date: 20180521
  Transmission Date: 20180711
  Serious: No
  Sender: FDA-Public Use
  Company Number: US-TEVA-759405ACC

PATIENT

DRUGS (22)
  1. MEXILETINE [Suspect]
     Active Substance: MEXILETINE
     Dosage: 750 MILLIGRAM DAILY;
  2. IMITREX [Concomitant]
     Active Substance: SUMATRIPTAN SUCCINATE
     Route: 058
  3. IBUPROFEN. [Concomitant]
     Active Substance: IBUPROFEN
     Indication: HEADACHE
     Dosage: 800MG PO UP TO TID
     Route: 048
  4. AMBIEN [Concomitant]
     Active Substance: ZOLPIDEM TARTRATE
     Dosage: AT BEDTIME
  5. IMITREX [Concomitant]
     Active Substance: SUMATRIPTAN SUCCINATE
     Indication: HEADACHE
     Dosage: 2 DOSAGE FORMS DAILY;
     Route: 048
  6. TYLENOL [Concomitant]
     Active Substance: ACETAMINOPHEN
  7. BENICAR [Concomitant]
     Active Substance: OLMESARTAN MEDOXOMIL
     Dosage: 20 MILLIGRAM DAILY;
  8. CALCITRIOL. [Concomitant]
     Active Substance: CALCITRIOL
     Dosage: .25 MILLIGRAM DAILY;
     Route: 048
  9. COGENTIN [Concomitant]
     Active Substance: BENZTROPINE MESYLATE
  10. MEXILETINE [Suspect]
     Active Substance: MEXILETINE
     Dosage: 300 MILLIGRAM DAILY;
  11. LIPITOR [Concomitant]
     Active Substance: ATORVASTATIN CALCIUM
     Dosage: AT BED TIME
     Route: 048
  12. OXYTOCIN. [Concomitant]
     Active Substance: OXYTOCIN
     Dosage: 150 IU/ML, 2 EACH NOST
  13. DIHYDROERGOTAMINE (DHE) [Concomitant]
     Indication: HEADACHE
     Route: 030
  14. HALDOL [Concomitant]
     Active Substance: HALOPERIDOL
     Indication: HEADACHE
     Dosage: 2-4 MG
  15. PREDNISONE. [Concomitant]
     Active Substance: PREDNISONE
  16. TESTOSTERONE. [Concomitant]
     Active Substance: TESTOSTERONE
     Dosage: SEEDS IMPLANTED#10
     Dates: start: 201702
  17. PANTOPRAZOLE [Concomitant]
     Active Substance: PANTOPRAZOLE
     Dosage: 80 MILLIGRAM DAILY;
  18. SEROQUEL [Concomitant]
     Active Substance: QUETIAPINE FUMARATE
     Indication: HEADACHE
     Dosage: RARE-NIGHT TIME ONLY
  19. WELLBUTRIN [Concomitant]
     Active Substance: BUPROPION HYDROCHLORIDE
     Dosage: 3 DOSAGE FORMS DAILY;
  20. CLARITIN [Concomitant]
     Active Substance: LORATADINE
     Dosage: 2 QD
  21. MEXILETINE [Suspect]
     Active Substance: MEXILETINE
     Indication: MIGRAINE
     Dosage: 450 MILLIGRAM DAILY;
     Dates: start: 20161210
  22. TORADOL [Concomitant]
     Active Substance: KETOROLAC TROMETHAMINE
     Indication: HEADACHE
     Route: 030

REACTIONS (3)
  - Decreased appetite [Recovered/Resolved]
  - Abdominal pain [Recovered/Resolved]
  - Weight decreased [Recovered/Resolved]
